FAERS Safety Report 4335391-3 (Version None)
Quarter: 2004Q2

REPORT INFORMATION
  Report Type: 
  Country: None (occurrence: None)
  Receive Date: 20040407
  Receipt Date: 20040407
  Transmission Date: 20050107
  Serious: No
  Sender: FDA-Public Use
  Company Number: None

PATIENT
  Age: 39 Year
  Sex: Male

DRUGS (1)
  1. UNASYN [Suspect]
     Dosage: Q6H
     Dates: start: 20040329

REACTIONS (4)
  - DYSPNOEA [None]
  - ERYTHEMA [None]
  - NAUSEA [None]
  - OXYGEN SATURATION DECREASED [None]
